FAERS Safety Report 5346573-6 (Version None)
Quarter: 2007Q2

REPORT INFORMATION
  Report Type: 
  Country: None (occurrence: None)
  Receive Date: 20070430
  Receipt Date: 20070307
  Transmission Date: 20071010
  Serious: No
  Sender: FDA-Public Use
  Company Number: 261436

PATIENT
  Age: 66 Year
  Sex: Male
  Weight: 72.6 kg

DRUGS (4)
  1. LEVEMIR [Suspect]
     Indication: DIABETES MELLITUS NON-INSULIN-DEPENDENT
     Dosage: 10 U, QD, SUBCUTANEOUS
     Route: 058
     Dates: start: 20061101
  2. METFORMIN HCL [Concomitant]
  3. GLIPIZIDE [Concomitant]
  4. ACIPHEX [Concomitant]

REACTIONS (1)
  - FLATULENCE [None]
